FAERS Safety Report 8840585 (Version 1)
Quarter: 2012Q4

REPORT INFORMATION
  Report Type: 
  Country: BR (occurrence: BR)
  Receive Date: 20121015
  Receipt Date: 20121015
  Transmission Date: 20130627
  Serious: Yes (Other)
  Sender: FDA-Public Use
  Company Number: BR-JNJFOC-20121006055

PATIENT
  Age: 62 None
  Sex: Female
  Weight: 95 kg

DRUGS (6)
  1. TYLEX [Suspect]
     Indication: ARTHRALGIA
     Route: 048
     Dates: start: 20121007, end: 20121007
  2. TYLEX [Suspect]
     Indication: ARTHRALGIA
     Route: 048
     Dates: start: 201204, end: 201204
  3. ENALAPRIL [Suspect]
     Indication: HYPERTENSION
     Route: 065
     Dates: start: 2008
  4. HYDROCHLOROTHIAZIDE [Suspect]
     Indication: HYPERTENSION
     Route: 065
     Dates: start: 2008
  5. MONOCORDIL [Concomitant]
     Indication: CARDIAC DISORDER
     Route: 065
     Dates: start: 2008
  6. SIMVASTATIN [Concomitant]
     Indication: BLOOD CHOLESTEROL INCREASED
     Route: 065
     Dates: start: 2008

REACTIONS (3)
  - Syncope [Recovered/Resolved]
  - Hypotension [Unknown]
  - Dizziness [Recovered/Resolved]
